FAERS Safety Report 8784284 (Version 1)
Quarter: 2012Q4

REPORT INFORMATION
  Report Type: Spontaneous
  Country: BE (occurrence: None)
  Receive Date: 20120830
  Receipt Date: 20120830
  Transmission Date: 20130627
  Serious: Yes (Hospitalization, Other)
  Sender: FDA-Public Use
  Company Number: 2012P1054491

PATIENT
  Age: 86 Year
  Sex: Male

DRUGS (1)
  1. METRONIDAZOLE [Suspect]
     Indication: LIVER ABSCESS
     Route: 048

REACTIONS (12)
  - Balance disorder [None]
  - Diplopia [None]
  - Paraesthesia [None]
  - Dysstasia [None]
  - Gait disturbance [None]
  - Ataxia [None]
  - Dysarthria [None]
  - Cerebellar syndrome [None]
  - Nystagmus [None]
  - Areflexia [None]
  - Toxic encephalopathy [None]
  - Decreased vibratory sense [None]
